FAERS Safety Report 5692067-8 (Version None)
Quarter: 2008Q2

REPORT INFORMATION
  Report Type: 
  Country: None (occurrence: None)
  Receive Date: 20080402
  Receipt Date: 20080321
  Transmission Date: 20081010
  Serious: Yes (Other)
  Sender: FDA-Public Use
  Company Number: US-PFIZER INC-2005173599

PATIENT
  Sex: Male
  Weight: 104.3 kg

DRUGS (16)
  1. VIAGRA [Suspect]
     Indication: ERECTILE DYSFUNCTION
     Route: 048
  2. VIAGRA [Suspect]
     Indication: ILL-DEFINED DISORDER
  3. ZOCOR [Concomitant]
     Route: 048
  4. PLAVIX [Concomitant]
     Route: 048
  5. ALLOPURINOL [Concomitant]
     Route: 048
  6. LISINOPRIL [Concomitant]
     Route: 048
  7. NORVASC [Concomitant]
     Route: 048
  8. COREG [Concomitant]
     Route: 048
  9. ACETYLSALICYLIC ACID SRT [Concomitant]
     Route: 048
  10. PRILOSEC [Concomitant]
     Route: 048
  11. TERAZOSIN HCL [Concomitant]
     Route: 048
  12. MONTELUKAST SODIUM [Concomitant]
     Route: 048
  13. ALBUTEROL [Concomitant]
     Route: 055
  14. GLIPIZIDE [Concomitant]
     Route: 048
  15. NASACORT [Concomitant]
     Route: 055
  16. VIOXX [Concomitant]
     Route: 048

REACTIONS (5)
  - DRUG INEFFECTIVE [None]
  - DYSURIA [None]
  - ERECTILE DYSFUNCTION [None]
  - INAPPROPRIATE SCHEDULE OF DRUG ADMINISTRATION [None]
  - PROSTATOMEGALY [None]
